FAERS Safety Report 4965043-8 (Version None)
Quarter: 2006Q1

REPORT INFORMATION
  Report Type: 
  Country: None (occurrence: None)
  Receive Date: 20060207
  Receipt Date: 20051010
  Transmission Date: 20060701
  Serious: Yes (Life-Threatening)
  Sender: FDA-Public Use
  Company Number: 247622

PATIENT
  Age: 58 Year
  Sex: Male
  Weight: 63.5 kg

DRUGS (2)
  1. NOVOLOG [Suspect]
     Indication: INSULIN-REQUIRING TYPE II DIABETES MELLITUS
     Dosage: 39 IU, QD, SUBCUTANEOUS
     Route: 058
     Dates: start: 20010101
  2. ORAL ANTIDIABETICS [Concomitant]

REACTIONS (1)
  - HYPOGLYCAEMIC COMA [None]
